FAERS Safety Report 14331280 (Version 3)
Quarter: 2018Q1

REPORT INFORMATION
  Report Type: Report from Study
  Country: CA (occurrence: CA)
  Receive Date: 20171228
  Receipt Date: 20180109
  Transmission Date: 20180509
  Serious: Yes (Other)
  Sender: FDA-Public Use
  Company Number: CA-ROCHE-2043738

PATIENT
  Sex: Female

DRUGS (3)
  1. CORTISONE [Concomitant]
     Active Substance: CORTISONE\HYDROCORTISONE
  2. ACTEMRA [Suspect]
     Active Substance: TOCILIZUMAB
     Indication: RHEUMATOID ARTHRITIS
     Dosage: WEEKLY; ON HOLD
     Route: 058
     Dates: start: 20170731, end: 2017
  3. ALTACE [Concomitant]
     Active Substance: RAMIPRIL

REACTIONS (2)
  - Pancreatic disorder [Unknown]
  - Hepatic enzyme increased [Unknown]
